FAERS Safety Report 10467217 (Version 1)
Quarter: 2014Q3

REPORT INFORMATION
  Report Type: Spontaneous
  Country: JP (occurrence: JP)
  Receive Date: 20140922
  Receipt Date: 20140922
  Transmission Date: 20150326
  Serious: Yes (Other)
  Sender: FDA-Public Use
  Company Number: PHHY2011JP122865

PATIENT
  Sex: Female

DRUGS (1)
  1. TASIGNA [Suspect]
     Active Substance: NILOTINIB
     Indication: CHRONIC MYELOID LEUKAEMIA
     Dosage: 300 MG, DAILY
     Dates: start: 20110613

REACTIONS (4)
  - Headache [Unknown]
  - Fatigue [Unknown]
  - Retinal haemorrhage [Unknown]
  - Palpitations [Unknown]

NARRATIVE: CASE EVENT DATE: 20110808
